FAERS Safety Report 8834452 (Version 1)
Quarter: 2012Q4

REPORT INFORMATION
  Report Type: 
  Country: FR (occurrence: FR)
  Receive Date: 20121010
  Receipt Date: 20121010
  Transmission Date: 20130627
  Serious: Yes (Hospitalization)
  Sender: FDA-Public Use
  Company Number: FR-JNJFOC-20121002566

PATIENT
  Age: 21 Year
  Sex: Male

DRUGS (10)
  1. PREZISTA [Suspect]
     Indication: HIV INFECTION
     Route: 048
  2. TRUVADA [Suspect]
     Indication: HIV INFECTION
     Route: 048
  3. NORVIR [Suspect]
     Indication: HIV INFECTION
     Route: 048
  4. ROCEPHIN [Suspect]
     Indication: HIV INFECTION
     Route: 042
     Dates: start: 20120814, end: 20120820
  5. ROCEPHIN [Suspect]
     Indication: HIV INFECTION
     Route: 042
     Dates: start: 20120828, end: 20120906
  6. BACTRIM [Suspect]
     Indication: HIV INFECTION
     Route: 065
     Dates: start: 20120613, end: 20120831
  7. LEDERFOLINE [Concomitant]
     Route: 065
  8. PYOSTACINE [Concomitant]
     Route: 065
  9. PERFALGAN [Concomitant]
     Route: 065
  10. TOPALGIC [Concomitant]
     Route: 065

REACTIONS (1)
  - Neutropenia [Not Recovered/Not Resolved]
